FAERS Safety Report 6217911-7 (Version None)
Quarter: 2009Q2

REPORT INFORMATION
  Report Type: 
  Country: None (occurrence: None)
  Receive Date: 20090608
  Receipt Date: 20090529
  Transmission Date: 20091009
  Serious: Yes (Death, Hospitalization)
  Sender: FDA-Public Use
  Company Number: JP-BAYER-200911561BYL

PATIENT
  Age: 44 Year
  Sex: Female
  Weight: 45 kg

DRUGS (3)
  1. FLUDARA [Suspect]
     Indication: ALLOGENIC BONE MARROW TRANSPLANTATION THERAPY
     Route: 042
     Dates: start: 20080915, end: 20080920
  2. BUSULFEX [Suspect]
     Indication: ALLOGENIC BONE MARROW TRANSPLANTATION THERAPY
     Route: 041
     Dates: start: 20080921, end: 20080924
  3. PROGRAF [Concomitant]
     Indication: PROPHYLAXIS AGAINST GRAFT VERSUS HOST DISEASE
     Route: 042
     Dates: start: 20080926, end: 20081128

REACTIONS (4)
  - BLOOD GLUCOSE INCREASED [None]
  - DISSEMINATED INTRAVASCULAR COAGULATION [None]
  - NON-HODGKIN'S LYMPHOMA [None]
  - PNEUMONIA [None]
